FAERS Safety Report 13923156 (Version 1)
Quarter: 2017Q3

REPORT INFORMATION
  Report Type: Spontaneous
  Country: US (occurrence: US)
  Receive Date: 20170831
  Receipt Date: 20170831
  Transmission Date: 20171127
  Serious: Yes (Life-Threatening, Hospitalization, Other)
  Sender: FDA-Public Use
  Company Number: US-CIPLA LTD.-2017US15260

PATIENT

DRUGS (3)
  1. CYCLOBENZAPRINE HYDROCHLORIDE. [Suspect]
     Active Substance: CYCLOBENZAPRINE HYDROCHLORIDE
     Indication: SUICIDE ATTEMPT
     Dosage: 10 MG, FATHER IMMEDIATELY CALLED FROM HOME TO TELL THAT 10 TABLETS OF CYCLOBENZAPRINE WERE MISSING
     Route: 048
     Dates: start: 201504
  2. VENLAFAXINE [Suspect]
     Active Substance: VENLAFAXINE HYDROCHLORIDE
     Indication: SUICIDE ATTEMPT
     Dosage: 150 MG, FATHER IMMEDIATELY CALLED FROM HOME TO TELL THAT 10 TABLETS OF VENLAFAXINE WERE MISSING
     Route: 048
     Dates: start: 201504
  3. BUPROPION HYDROCHLORIDE XL [Suspect]
     Active Substance: BUPROPION HYDROCHLORIDE
     Indication: SUICIDE ATTEMPT
     Dosage: 150 MG, FATHER IMMEDIATELY CALLED FROM HOME TO TELL THAT 40 TABLETS OF BUPROPION WERE MISSING
     Route: 048
     Dates: start: 201504

REACTIONS (9)
  - Anaemia [Recovering/Resolving]
  - Encephalopathy [Recovering/Resolving]
  - Decorticate posture [Recovering/Resolving]
  - Generalised tonic-clonic seizure [Recovering/Resolving]
  - Unresponsive to stimuli [Recovering/Resolving]
  - Intentional product misuse [Recovering/Resolving]
  - Atelectasis [Recovering/Resolving]
  - Leukocytosis [Recovering/Resolving]
  - Serotonin syndrome [Recovering/Resolving]

NARRATIVE: CASE EVENT DATE: 201504
